APPROVED DRUG PRODUCT: HYDROCODONE BITARTRATE AND ACETAMINOPHEN
Active Ingredient: ACETAMINOPHEN; HYDROCODONE BITARTRATE
Strength: 325MG;5MG
Dosage Form/Route: TABLET;ORAL
Application: A202935 | Product #002 | TE Code: AA
Applicant: STRIDES PHARMA INTERNATIONAL AG
Approved: Jun 15, 2016 | RLD: No | RS: No | Type: RX